FAERS Safety Report 5208521-9 (Version None)
Quarter: 2007Q1

REPORT INFORMATION
  Report Type: 
  Country: None (occurrence: None)
  Receive Date: 20070115
  Receipt Date: 20070109
  Transmission Date: 20070707
  Serious: Yes (Hospitalization)
  Sender: FDA-Public Use
  Company Number: ES-ROXANE LABORATORIES, INC-2007-BP-00341RO

PATIENT
  Age: 59 Year
  Sex: Female

DRUGS (5)
  1. ALPRAZOLAM [Suspect]
     Indication: ANXIETY
     Dosage: 0.5 MG Q12H X 2 DOSES
     Route: 048
  2. ALPRAZOLAM [Suspect]
     Dosage: 0.25 MG Q12H X 2 DOSES
     Route: 048
  3. PAROXETINE HCL [Suspect]
     Indication: ANXIETY
     Dosage: 20 MG QD X 2 DAYS
     Route: 048
  4. POTASSIUM CLORAZEPATE [Concomitant]
     Indication: ANXIETY
  5. POTASSIUM CLORAZEPATE [Concomitant]
     Indication: DEPRESSION

REACTIONS (4)
  - ANGIOEDEMA [None]
  - DYSTONIA [None]
  - MUSCLE CONTRACTURE [None]
  - OBSTRUCTIVE AIRWAYS DISORDER [None]
